FAERS Safety Report 14170681 (Version 1)
Quarter: 2017Q4

REPORT INFORMATION
  Report Type: Spontaneous
  Country: PE (occurrence: PE)
  Receive Date: 20171108
  Receipt Date: 20171108
  Transmission Date: 20180321
  Serious: Yes (Hospitalization, Other)
  Sender: FDA-Public Use
  Company Number: PE-GLAXOSMITHKLINE-PE2017GSK169894

PATIENT
  Sex: Male

DRUGS (1)
  1. DUODART [Suspect]
     Active Substance: DUTASTERIDE\TAMSULOSIN
     Indication: BENIGN PROSTATIC HYPERPLASIA
     Dosage: 1 DF, QD,CAPSULE
     Route: 048
     Dates: start: 201705

REACTIONS (2)
  - Gastric haemorrhage [Recovering/Resolving]
  - Overdose [Recovering/Resolving]
